FAERS Safety Report 8896536 (Version 1)
Quarter: 2012Q4

REPORT INFORMATION
  Report Type: Spontaneous
  Country: GB (occurrence: None)
  Receive Date: 20121105
  Receipt Date: 20121105
  Transmission Date: 20130627
  Serious: Yes (Other)
  Sender: FDA-Public Use
  Company Number: FK201203231

PATIENT
  Sex: Female

DRUGS (4)
  1. CARBOPLATIN [Suspect]
     Indication: ENDOMETRIAL CANCER
  2. PACLITAXEL [Suspect]
  3. CORTICOSTEROIDS [Suspect]
  4. THERAPEUTIC RADIOPHARMACEUTICALS (THERAPEUTIC RADIOPHARMACEUTICALS) [Suspect]

REACTIONS (2)
  - Diabetes mellitus inadequate control [None]
  - Visual impairment [None]
